FAERS Safety Report 6923735-5 (Version None)
Quarter: 2010Q3

REPORT INFORMATION
  Report Type: 
  Country: None (occurrence: None)
  Receive Date: 20100813
  Receipt Date: 20100721
  Transmission Date: 20110219
  Serious: Yes (Hospitalization)
  Sender: FDA-Public Use
  Company Number: US-BAYER-201026226NA

PATIENT
  Age: 40 Year
  Sex: Male

DRUGS (4)
  1. BETASERON [Suspect]
     Indication: RELAPSING-REMITTING MULTIPLE SCLEROSIS
     Route: 058
     Dates: start: 20000101, end: 20000101
  2. BETASERON [Suspect]
     Route: 058
     Dates: end: 20100201
  3. CHEMOTHERAPY [Concomitant]
     Dates: start: 20000101, end: 20000101
  4. TYSABRI [Concomitant]

REACTIONS (2)
  - MULTIPLE SCLEROSIS RELAPSE [None]
  - STEM CELL TRANSPLANT [None]
